FAERS Safety Report 4523237-X (Version None)
Quarter: 2004Q4

REPORT INFORMATION
  Report Type: 
  Country: None (occurrence: None)
  Receive Date: 20041208
  Receipt Date: 20041208
  Transmission Date: 20050328
  Serious: Yes (Other)
  Sender: FDA-Public Use
  Company Number: None

PATIENT

DRUGS (1)
  1. LIDOCAINE [Suspect]
     Dosage: DROPS TO NUMB EYES
     Route: 047
     Dates: start: 20041203

REACTIONS (3)
  - CORNEAL ULCER [None]
  - EYE IRRITATION [None]
  - EYE PAIN [None]
